FAERS Safety Report 5693480-5 (Version None)
Quarter: 2008Q2

REPORT INFORMATION
  Report Type: 
  Country: None (occurrence: None)
  Receive Date: 20080402
  Receipt Date: 20080402
  Transmission Date: 20081010
  Serious: No
  Sender: FDA-Public Use
  Company Number: None

PATIENT
  Sex: Male
  Weight: 103.4201 kg

DRUGS (1)
  1. VYTORIN [Suspect]
     Indication: LOW DENSITY LIPOPROTEIN INCREASED
     Dosage: 1 TABLET  1 DAILY  PO
     Route: 048
     Dates: start: 20080322, end: 20080326

REACTIONS (3)
  - EXERCISE TOLERANCE DECREASED [None]
  - INFLUENZA LIKE ILLNESS [None]
  - PAIN [None]
